FAERS Safety Report 14584660 (Version 2)
Quarter: 2018Q2

REPORT INFORMATION
  Report Type: Spontaneous
  Country: TW (occurrence: TW)
  Receive Date: 20180301
  Receipt Date: 20180628
  Transmission Date: 20180711
  Serious: Yes (Other)
  Sender: FDA-Public Use
  Company Number: PL-ALKEM LABORATORIES LIMITED-PL-ALKEM-2018-01040

PATIENT
  Age: 59 Year
  Sex: Female

DRUGS (4)
  1. CLONAZEPAM. [Suspect]
     Active Substance: CLONAZEPAM
     Indication: BIPOLAR DISORDER
     Dosage: 20 MG, QD
     Route: 065
  2. QUETIAPINE FUMARATE. [Suspect]
     Active Substance: QUETIAPINE FUMARATE
     Dosage: 2400 MG, QD
     Route: 065
  3. QUETIAPINE FUMARATE. [Suspect]
     Active Substance: QUETIAPINE FUMARATE
     Indication: BIPOLAR DISORDER
     Dosage: 800 MG, QD
     Route: 065
  4. ZOLPIDEM [Suspect]
     Active Substance: ZOLPIDEM\ZOLPIDEM TARTRATE
     Indication: BIPOLAR DISORDER
     Dosage: 600 MG, AT NIGHT
     Route: 065

REACTIONS (10)
  - Feeling of despair [Recovering/Resolving]
  - Insomnia [Recovering/Resolving]
  - Drug dependence [Recovering/Resolving]
  - Suicidal ideation [Recovering/Resolving]
  - Helplessness [Recovering/Resolving]
  - Decreased appetite [Recovering/Resolving]
  - Depressed mood [Recovering/Resolving]
  - Feelings of worthlessness [Recovering/Resolving]
  - Fatigue [Recovering/Resolving]
  - Anhedonia [Recovering/Resolving]
